FAERS Safety Report 10233530 (Version 1)
Quarter: 2014Q2

REPORT INFORMATION
  Report Type: Spontaneous
  Country: IT (occurrence: None)
  Receive Date: 20140610
  Receipt Date: 20140610
  Transmission Date: 20141212
  Serious: Yes (Death)
  Sender: FDA-Public Use
  Company Number: 2014HINLIT0522

PATIENT
  Age: 46 Year
  Sex: 0

DRUGS (4)
  1. ISENTRESS [Suspect]
     Indication: ANTIRETROVIRAL THERAPY
     Dosage: UNK, UNKOWN
  2. SORAFENIB [Suspect]
     Indication: PRODUCT USED FOR UNKNOWN INDICATION
     Dosage: UNK, UNKNOWN
  3. REYATAZ [Suspect]
     Indication: ANTIRETROVIRAL THERAPY
  4. EMTRICITABINE + TENOFOVIR [Suspect]
     Indication: ANTIRETROVIRAL THERAPY
     Dosage: UNK UNKNOWN

REACTIONS (5)
  - Fatigue [None]
  - Malignant neoplasm progression [None]
  - Drug interaction [None]
  - Hepatocellular carcinoma [None]
  - Hepatotoxicity [None]
